FAERS Safety Report 15721216 (Version 3)
Quarter: 2019Q1

REPORT INFORMATION
  Report Type: Spontaneous
  Country: CA (occurrence: CA)
  Receive Date: 20181214
  Receipt Date: 20190227
  Transmission Date: 20190417
  Serious: Yes (Other)
  Sender: FDA-Public Use
  Company Number: CA-ORION CORPORATION ORION PHARMA-TREX2018-3731

PATIENT
  Age: 14 Year
  Sex: Female

DRUGS (18)
  1. LEFLUNOMIDE. [Concomitant]
     Active Substance: LEFLUNOMIDE
     Route: 065
  2. CALCIUM [Concomitant]
     Active Substance: CALCIUM
     Route: 065
  3. CYCLOSPORINE A [Concomitant]
     Active Substance: CYCLOSPORINE
     Route: 065
  4. CYCLOSPORINE. [Concomitant]
     Active Substance: CYCLOSPORINE
     Route: 065
  5. METHOTREXATE (TRADE NAME UNKNOWN) [Suspect]
     Active Substance: METHOTREXATE
     Indication: IRIDOCYCLITIS
  6. ENBREL [Suspect]
     Active Substance: ETANERCEPT
     Indication: JUVENILE IDIOPATHIC ARTHRITIS
     Route: 058
  7. CICLOSPORIN [Concomitant]
     Active Substance: CYCLOSPORINE
     Route: 065
  8. FERRIC HYDROXIDE POLYMALTOSE [Suspect]
     Active Substance: IRON POLYMALTOSE
     Indication: PRODUCT USED FOR UNKNOWN INDICATION
     Route: 065
  9. ETANERCEPT [Suspect]
     Active Substance: ETANERCEPT
     Indication: JUVENILE IDIOPATHIC ARTHRITIS
     Route: 065
  10. HYDROXYCHLOROQUINE SULFATE. [Suspect]
     Active Substance: HYDROXYCHLOROQUINE SULFATE
     Indication: PRODUCT USED FOR UNKNOWN INDICATION
     Route: 065
  11. AZATHIOPRINE. [Concomitant]
     Active Substance: AZATHIOPRINE
     Route: 065
  12. HYDROXYCHLOROQUINE [Concomitant]
     Active Substance: HYDROXYCHLOROQUINE
     Route: 065
  13. IRON [Concomitant]
     Active Substance: IRON
     Route: 065
  14. METHOTREXATE (TRADE NAME UNKNOWN) [Suspect]
     Active Substance: METHOTREXATE
     Indication: JUVENILE IDIOPATHIC ARTHRITIS
     Route: 065
  15. MTX [Concomitant]
     Active Substance: METHOTREXATE SODIUM
     Route: 065
  16. ACETAZOLAMIDE. [Concomitant]
     Active Substance: ACETAZOLAMIDE
     Route: 065
  17. ALENDRONATE SODIUM. [Concomitant]
     Active Substance: ALENDRONATE SODIUM
     Route: 065
  18. ALENDRONATE [Concomitant]
     Active Substance: ALENDRONATE SODIUM
     Route: 065

REACTIONS (1)
  - Hair follicle tumour benign [Unknown]
